FAERS Safety Report 18083371 (Version 1)
Quarter: 2020Q3

REPORT INFORMATION
  Report Type: Spontaneous
  Country: US (occurrence: US)
  Receive Date: 20200729
  Receipt Date: 20200729
  Transmission Date: 20201103
  Serious: No
  Sender: FDA-Public Use
  Company Number: NVSC2020US205765

PATIENT

DRUGS (14)
  1. NABUMETONE. [Suspect]
     Active Substance: NABUMETONE
     Dosage: 700 MG, UNKNOWN
     Route: 065
  2. PIOGLITAZONE. [Suspect]
     Active Substance: PIOGLITAZONE
     Indication: PRODUCT USED FOR UNKNOWN INDICATION
     Route: 065
  3. NIACIN. [Suspect]
     Active Substance: NIACIN
     Indication: PRODUCT USED FOR UNKNOWN INDICATION
     Route: 065
  4. COBALT [Suspect]
     Active Substance: COBALT
     Indication: PRODUCT USED FOR UNKNOWN INDICATION
     Route: 065
  5. DICLOFENAC [Suspect]
     Active Substance: DICLOFENAC
     Indication: PRODUCT USED FOR UNKNOWN INDICATION
     Route: 065
  6. SULFAMETHOXAZOLE [Suspect]
     Active Substance: SULFAMETHOXAZOLE
     Indication: PRODUCT USED FOR UNKNOWN INDICATION
     Route: 065
  7. THIMEROSAL [Suspect]
     Active Substance: THIMEROSAL
     Indication: PRODUCT USED FOR UNKNOWN INDICATION
     Route: 065
  8. NABUMETONE. [Suspect]
     Active Substance: NABUMETONE
     Indication: PRODUCT USED FOR UNKNOWN INDICATION
     Dosage: 500 MG, UNKNOWN
     Route: 065
  9. NICKEL [Suspect]
     Active Substance: NICKEL
     Indication: PRODUCT USED FOR UNKNOWN INDICATION
     Route: 065
  10. PSYLLIUM [Suspect]
     Active Substance: PLANTAGO SEED
     Indication: PRODUCT USED FOR UNKNOWN INDICATION
     Route: 065
  11. COLESEVELAM [Suspect]
     Active Substance: COLESEVELAM
     Indication: PRODUCT USED FOR UNKNOWN INDICATION
     Route: 065
  12. PALLADIUM [Suspect]
     Active Substance: PALLADIUM
     Indication: PRODUCT USED FOR UNKNOWN INDICATION
     Route: 065
  13. SUCROSE [Suspect]
     Active Substance: SUCROSE
     Indication: PRODUCT USED FOR UNKNOWN INDICATION
     Route: 065
  14. TRAMADOL. [Suspect]
     Active Substance: TRAMADOL
     Indication: PRODUCT USED FOR UNKNOWN INDICATION
     Route: 065

REACTIONS (1)
  - Hypersensitivity [Unknown]
